FAERS Safety Report 9335035 (Version 1)
Quarter: 2013Q2

REPORT INFORMATION
  Report Type: Spontaneous
  Country: US (occurrence: US)
  Receive Date: 20130606
  Receipt Date: 20130606
  Transmission Date: 20140414
  Serious: No
  Sender: FDA-Public Use
  Company Number: US-TEVA-410691USA

PATIENT
  Age: 32 Year
  Sex: Female
  Weight: 57.2 kg

DRUGS (5)
  1. PLAN B ONE-STEP [Suspect]
     Indication: POST COITAL CONTRACEPTION
     Dosage: 1.5  DAILY;
     Route: 048
     Dates: start: 20130518, end: 20130518
  2. WELLBUTRIN [Concomitant]
     Indication: DEPRESSION
  3. RISPERDAL [Concomitant]
     Indication: DEPRESSION
  4. KLONOPIN [Concomitant]
     Indication: INSOMNIA
  5. ADDERALL [Concomitant]
     Indication: ATTENTION DEFICIT/HYPERACTIVITY DISORDER

REACTIONS (1)
  - Menstruation irregular [Not Recovered/Not Resolved]
